FAERS Safety Report 18145273 (Version 1)
Quarter: 2020Q3

REPORT INFORMATION
  Report Type: Spontaneous
  Country: US (occurrence: US)
  Receive Date: 20200813
  Receipt Date: 20200813
  Transmission Date: 20201103
  Serious: Yes (Hospitalization)
  Sender: FDA-Public Use
  Company Number: None

PATIENT
  Sex: Male

DRUGS (13)
  1. CLOPIDOGREL [Concomitant]
     Active Substance: CLOPIDOGREL BISULFATE
  2. LANTUS [Concomitant]
     Active Substance: INSULIN GLARGINE
  3. METOPROLOL. [Concomitant]
     Active Substance: METOPROLOL
  4. PRAVASTATIN. [Concomitant]
     Active Substance: PRAVASTATIN
  5. MYCOPHENOLIC [Concomitant]
     Active Substance: MYCOPHENOLIC ACID
  6. TAMSULOSIN [Concomitant]
     Active Substance: TAMSULOSIN
  7. NOVOLOG [Concomitant]
     Active Substance: INSULIN ASPART
  8. ALLOPURINOL. [Concomitant]
     Active Substance: ALLOPURINOL
  9. FUROSEMIDE. [Concomitant]
     Active Substance: FUROSEMIDE
  10. PACERONE [Concomitant]
     Active Substance: AMIODARONE HYDROCHLORIDE
  11. PROGRAF [Suspect]
     Active Substance: TACROLIMUS
     Indication: RENAL TRANSPLANT
     Dosage: ?          OTHER FREQUENCY:2MG QAM, 1MG QPM;?
     Route: 048
     Dates: start: 20160720
  12. PREDNISONE. [Concomitant]
     Active Substance: PREDNISONE
  13. SMZ?TMP [Concomitant]
     Active Substance: SULFAMETHOXAZOLE\TRIMETHOPRIM

REACTIONS (1)
  - Surgery [None]
